FAERS Safety Report 6107728-6 (Version None)
Quarter: 2009Q1

REPORT INFORMATION
  Report Type: 
  Country: None (occurrence: None)
  Receive Date: 20090309
  Receipt Date: 20090303
  Transmission Date: 20090719
  Serious: Yes (Hospitalization)
  Sender: FDA-Public Use
  Company Number: A0759636A

PATIENT
  Age: 69 Year
  Sex: Male
  Weight: 90.9 kg

DRUGS (11)
  1. REQUIP [Suspect]
     Indication: PARKINSON'S DISEASE
     Dosage: 2MG THREE TIMES PER DAY
     Route: 048
  2. ALTACE [Concomitant]
  3. AMANTADINE HCL [Concomitant]
  4. LIPITOR [Concomitant]
  5. NORVASC [Concomitant]
  6. RANITIDINE [Concomitant]
  7. XALATAN [Concomitant]
  8. AZOPT [Concomitant]
  9. DOXAZOSIN MESYLATE [Concomitant]
  10. ASPIRIN [Concomitant]
  11. PRIMIDONE [Concomitant]

REACTIONS (3)
  - ABDOMINAL PAIN [None]
  - ABDOMINAL PAIN UPPER [None]
  - CARDIAC DISORDER [None]
